FAERS Safety Report 4286304-4 (Version None)
Quarter: 2004Q1

REPORT INFORMATION
  Report Type: 
  Country: None (occurrence: None)
  Receive Date: 20040129
  Receipt Date: 20030324
  Transmission Date: 20041129
  Serious: Yes (Hospitalization)
  Sender: FDA-Public Use
  Company Number: A001-002-005566

PATIENT
  Age: 80 Year
  Sex: Female
  Weight: 68 kg

DRUGS (7)
  1. ARICEPT [Suspect]
     Indication: SENILE DEMENTIA
     Dosage: 5 MG, 1 IN 1 D; ORAL
     Route: 048
     Dates: start: 20030110, end: 20030201
  2. ARICEPT [Suspect]
     Indication: SENILE DEMENTIA
     Dosage: 5 MG, 1 IN 1 D; ORAL
     Route: 048
     Dates: start: 20030201
  3. COUMADIN [Suspect]
     Dosage: UNKNOWN
     Route: 065
     Dates: end: 20030301
  4. PRINIVIL [Concomitant]
  5. ALDACTONE [Concomitant]
  6. POTASSIUM [Concomitant]
  7. LASIX [Concomitant]

REACTIONS (1)
  - RECTAL HAEMORRHAGE [None]
